FAERS Safety Report 6322369-3 (Version None)
Quarter: 2009Q3

REPORT INFORMATION
  Report Type: 
  Country: None (occurrence: None)
  Receive Date: 20090824
  Receipt Date: 20090813
  Transmission Date: 20100115
  Serious: Yes (Death, Other)
  Sender: FDA-Public Use
  Company Number: MX-BAXTER-2009BH012538

PATIENT
  Age: 61 Year
  Sex: Female
  Weight: 56 kg

DRUGS (5)
  1. HIGHLY CONCENTRATED POTASSIUM CHLORIDE INJECTION IN PLASTIC CONTAINER [Suspect]
     Indication: CARDIOPLEGIA
     Route: 042
     Dates: start: 20090721
  2. HIGHLY CONCENTRATED POTASSIUM CHLORIDE INJECTION IN PLASTIC CONTAINER [Suspect]
     Indication: CARDIAC OPERATION
     Route: 042
     Dates: start: 20090721
  3. MANNITOL [Concomitant]
     Indication: DRUG USE FOR UNKNOWN INDICATION
     Route: 042
     Dates: start: 20090721
  4. SOLU-MEDROL [Concomitant]
     Indication: DRUG USE FOR UNKNOWN INDICATION
     Route: 042
     Dates: start: 20090721
  5. MAGNESIUM SULFATE [Concomitant]
     Indication: DRUG USE FOR UNKNOWN INDICATION
     Route: 042
     Dates: start: 20090721

REACTIONS (2)
  - DEATH [None]
  - DRUG INEFFECTIVE [None]
